FAERS Safety Report 4596637-X (Version None)
Quarter: 2005Q1

REPORT INFORMATION
  Report Type: 
  Country: None (occurrence: None)
  Receive Date: 20050228
  Receipt Date: 20040607
  Transmission Date: 20050727
  Serious: Yes (Hospitalization)
  Sender: FDA-Public Use
  Company Number: 8209

PATIENT
  Age: 12 Year
  Sex: Female

DRUGS (9)
  1. METHOTREXATE [Suspect]
     Indication: NON-HODGKIN'S LYMPHOMA
     Dosage: 12 MG PER_CYCLE
     Route: 037
     Dates: start: 20020118, end: 20020312
  2. DEXAMETHASONE [Suspect]
     Indication: NON-HODGKIN'S LYMPHOMA
     Dosage: 13 MG
     Route: 042
     Dates: start: 20020118, end: 20020124
  3. VINCRISTINE [Suspect]
     Indication: NON-HODGKIN'S LYMPHOMA
     Dosage: 1.5 MG
     Route: 042
     Dates: start: 20020118, end: 20020311
  4. DOXORUBICIN HCL [Suspect]
     Indication: NON-HODGKIN'S LYMPHOMA
     Dosage: 32 MG
     Route: 042
     Dates: start: 20020119, end: 20020307
  5. CYTARABINE [Suspect]
     Indication: NON-HODGKIN'S LYMPHOMA
     Dosage: 30 MG
     Route: 037
     Dates: start: 20020118, end: 20020312
  6. PREDNISOLONE [Suspect]
     Indication: NON-HODGKIN'S LYMPHOMA
     Dosage: 50 MG
     Route: 048
     Dates: start: 20020112, end: 20020220
  7. CYCLOPHOSPHAMIDE [Suspect]
     Indication: NON-HODGKIN'S LYMPHOMA
     Dosage: 1200 MG
     Route: 042
     Dates: start: 20020118, end: 20020304
  8. ELSPAR [Suspect]
     Indication: NON-HODGKIN'S LYMPHOMA
     Dosage: 1E+07 UNITS
     Route: 042
     Dates: start: 20020126, end: 20020211
  9. HYDROCORTISONE [Suspect]
     Indication: NON-HODGKIN'S LYMPHOMA
     Dosage: 25 MG
     Route: 037
     Dates: start: 20020118, end: 20020318

REACTIONS (7)
  - CEREBRAL INFARCTION [None]
  - DRUG INTERACTION [None]
  - HYPERGLYCAEMIA [None]
  - HYPERTENSION [None]
  - LEUKOENCEPHALOPATHY [None]
  - REVERSIBLE POSTERIOR LEUKOENCEPHALOPATHY SYNDROME [None]
  - WHITE BLOOD CELL COUNT DECREASED [None]
